FAERS Safety Report 26114504 (Version 1)
Quarter: 2025Q4

REPORT INFORMATION
  Report Type: Report from Study
  Country: EU (occurrence: EU)
  Receive Date: 20251202
  Receipt Date: 20251202
  Transmission Date: 20260117
  Serious: Yes (Hospitalization)
  Sender: ABBVIE
  Company Number: EU-ABBVIE-6569535

PATIENT
  Age: 68 Year
  Sex: Female

DRUGS (7)
  1. RINVOQ [Suspect]
     Active Substance: UPADACITINIB
     Indication: Product used for unknown indication
     Route: 048
  2. COSENTYX [Suspect]
     Active Substance: SECUKINUMAB
     Indication: Product used for unknown indication
     Route: 048
     Dates: start: 20210302, end: 20210421
  3. COSENTYX [Suspect]
     Active Substance: SECUKINUMAB
     Indication: Product used for unknown indication
     Route: 048
     Dates: start: 20220227, end: 20221114
  4. COSENTYX [Suspect]
     Active Substance: SECUKINUMAB
     Indication: Product used for unknown indication
     Route: 048
     Dates: start: 20230404, end: 20240515
  5. COSENTYX [Suspect]
     Active Substance: SECUKINUMAB
     Indication: Product used for unknown indication
     Route: 048
     Dates: start: 20250115
  6. IBUPROFEN [Suspect]
     Active Substance: IBUPROFEN
     Indication: Product used for unknown indication
     Route: 065
     Dates: start: 20210615, end: 20210818
  7. IDACIO [Suspect]
     Active Substance: ADALIMUMAB-AACF
     Indication: Product used for unknown indication
     Route: 065
     Dates: start: 20220308, end: 20220517

REACTIONS (2)
  - Osteoarthritis [Unknown]
  - Vertebral foraminal stenosis [Unknown]

NARRATIVE: CASE EVENT DATE: 20241203
